FAERS Safety Report 7830524-6 (Version None)
Quarter: 2011Q4

REPORT INFORMATION
  Report Type: 
  Country: None (occurrence: None)
  Receive Date: 20111021
  Receipt Date: 20111012
  Transmission Date: 20120403
  Serious: Yes (Other)
  Sender: FDA-Public Use
  Company Number: US-NOVOPROD-337154

PATIENT

DRUGS (2)
  1. NOVOLOG MIX 70/30 [Suspect]
     Indication: TYPE 2 DIABETES MELLITUS
     Dosage: 20 U, QAM
     Route: 058
     Dates: start: 20101001
  2. NOVOLOG MIX 70/30 [Suspect]
     Dosage: 22 U, QPM
     Route: 058
     Dates: start: 20101001

REACTIONS (1)
  - ATRIAL FIBRILLATION [None]
